FAERS Safety Report 8076846-8 (Version None)
Quarter: 2012Q1

REPORT INFORMATION
  Report Type: 
  Country: None (occurrence: None)
  Receive Date: 20120127
  Receipt Date: 20120112
  Transmission Date: 20120608
  Serious: Yes (Other)
  Sender: FDA-Public Use
  Company Number: PHEH2012US001234

PATIENT
  Sex: Female

DRUGS (1)
  1. AFINITOR [Suspect]
     Dosage: 10 MG, QD
     Route: 048
     Dates: start: 20101001

REACTIONS (5)
  - SINUS HEADACHE [None]
  - HEADACHE [None]
  - INFLUENZA [None]
  - PULMONARY CONGESTION [None]
  - COUGH [None]
